FAERS Safety Report 22608744 (Version 2)
Quarter: 2023Q2

REPORT INFORMATION
  Report Type: Report from Study
  Country: EG (occurrence: EG)
  Receive Date: 20230616
  Receipt Date: 20230626
  Transmission Date: 20230721
  Serious: Yes (Other)
  Sender: FDA-Public Use
  Company Number: EG-002147023-NVSC2023EG135178

PATIENT
  Sex: Male

DRUGS (4)
  1. COSENTYX [Suspect]
     Active Substance: SECUKINUMAB
     Indication: Ankylosing spondylitis
     Dosage: 150 MG, QMO (STARTED AND ENDED BEFORE TWO YEARS; ONLY ONE DOSE)
     Route: 065
  2. CALCIUM [Concomitant]
     Active Substance: CALCIUM
     Indication: Ankylosing spondylitis
     Dosage: 1 DOSAGE FORM, QD (30 YEARS BEFORE)
     Route: 065
  3. FOLIC ACID [Concomitant]
     Active Substance: FOLIC ACID
     Indication: Ankylosing spondylitis
     Dosage: 1 DOSAGE FORM, QD (A WEEK BEFORE AND STOPPED UPON HCP DECISION)
     Route: 065
  4. SULFASALAZINE [Concomitant]
     Active Substance: SULFASALAZINE
     Indication: Ankylosing spondylitis
     Dosage: 2 DOSAGE FORM, QD (A WEEK BEFORE AND STOPPED UPON HCP DECISION)
     Route: 065

REACTIONS (2)
  - C-reactive protein increased [Recovering/Resolving]
  - Hypersensitivity [Recovered/Resolved]
